FAERS Safety Report 12202637 (Version 1)
Quarter: 2016Q1

REPORT INFORMATION
  Report Type: Spontaneous
  Country: FR (occurrence: FR)
  Receive Date: 20160322
  Receipt Date: 20160322
  Transmission Date: 20160526
  Serious: Yes (Hospitalization)
  Sender: FDA-Public Use
  Company Number: FR-BAXTER-2016BAX012231

PATIENT
  Age: 42 Year
  Sex: Female

DRUGS (13)
  1. SUFENTANIL [Suspect]
     Active Substance: SUFENTANIL
     Indication: PRODUCT USED FOR UNKNOWN INDICATION
     Dosage: SINGLE IV ADMINISTRATION
     Route: 042
     Dates: start: 20120124, end: 20120124
  2. ACUPAN [Concomitant]
     Active Substance: NEFOPAM HYDROCHLORIDE
     Indication: PRODUCT USED FOR UNKNOWN INDICATION
     Route: 065
  3. LACTATED RINGERS [Concomitant]
     Active Substance: CALCIUM CHLORIDE\POTASSIUM CHLORIDE\SODIUM CHLORIDE\SODIUM LACTATE
     Indication: PRODUCT USED FOR UNKNOWN INDICATION
     Route: 065
  4. DYNASTAT [Suspect]
     Active Substance: PARECOXIB SODIUM
     Indication: PRODUCT USED FOR UNKNOWN INDICATION
     Dosage: SINGLE IV ADMINISTRATION
     Route: 042
     Dates: start: 20120124, end: 20120124
  5. DIPRIVAN [Suspect]
     Active Substance: PROPOFOL
     Indication: PRODUCT USED FOR UNKNOWN INDICATION
     Route: 042
     Dates: start: 20120124, end: 20120124
  6. SEVOFLURANE BAXTER 1 ML/ML, LIQUIDE POUR INHALATION PAR VAPEUR [Suspect]
     Active Substance: SEVOFLURANE
     Indication: PRODUCT USED FOR UNKNOWN INDICATION
     Route: 055
     Dates: start: 20120124, end: 20120124
  7. ATROPINE. [Concomitant]
     Active Substance: ATROPINE
     Indication: PRODUCT USED FOR UNKNOWN INDICATION
     Route: 065
  8. CEFAZOLINE [Suspect]
     Active Substance: CEFAZOLIN SODIUM
     Indication: PRODUCT USED FOR UNKNOWN INDICATION
     Dosage: SINGLE IV ADMINISTRATION
     Route: 042
     Dates: start: 20120124, end: 20120124
  9. PERFALGAN [Suspect]
     Active Substance: ACETAMINOPHEN
     Indication: PRODUCT USED FOR UNKNOWN INDICATION
     Route: 042
     Dates: start: 20120124, end: 20120124
  10. KETAMINE [Suspect]
     Active Substance: KETAMINE
     Indication: PRODUCT USED FOR UNKNOWN INDICATION
     Route: 042
     Dates: start: 20120124, end: 20120124
  11. NIMBEX [Suspect]
     Active Substance: CISATRACURIUM BESYLATE
     Indication: PRODUCT USED FOR UNKNOWN INDICATION
     Dosage: 10 MG/ 5 ML SOLUTION FOR INJECTION (IV) IN VIAL
     Route: 042
     Dates: start: 20120124, end: 20120124
  12. HYPNOVEL [Suspect]
     Active Substance: MIDAZOLAM\MIDAZOLAM HYDROCHLORIDE
     Indication: PRODUCT USED FOR UNKNOWN INDICATION
     Route: 042
     Dates: start: 20120124, end: 20120124
  13. MORPHINE [Concomitant]
     Active Substance: MORPHINE
     Indication: PRODUCT USED FOR UNKNOWN INDICATION
     Route: 065

REACTIONS (3)
  - Cholestasis [Recovered/Resolved]
  - Hepatocellular injury [Recovered/Resolved]
  - Cholestasis [Recovered/Resolved]

NARRATIVE: CASE EVENT DATE: 20120201
